FAERS Safety Report 16522864 (Version 2)
Quarter: 2019Q3

REPORT INFORMATION
  Report Type: Report from Study
  Country: CA (occurrence: CA)
  Receive Date: 20190703
  Receipt Date: 20190923
  Transmission Date: 20191004
  Serious: Yes (Hospitalization)
  Sender: FDA-Public Use
  Company Number: PHHY2016CA067285

PATIENT
  Age: 48 Year
  Sex: Female

DRUGS (33)
  1. XOLAIR [Suspect]
     Active Substance: OMALIZUMAB
     Dosage: 300 MG, EVERY 4 WEEKS
     Route: 058
     Dates: start: 20181016
  2. REACTINE [Concomitant]
     Indication: URTICARIA
     Dosage: UNK
     Route: 065
  3. XOLAIR [Suspect]
     Active Substance: OMALIZUMAB
     Dosage: UNK
     Route: 058
     Dates: start: 20160607
  4. XOLAIR [Suspect]
     Active Substance: OMALIZUMAB
     Dosage: UNK
     Route: 058
     Dates: start: 20171114
  5. XOLAIR [Suspect]
     Active Substance: OMALIZUMAB
     Dosage: 300 MG, EVERY 4 WEEKS
     Route: 058
     Dates: start: 20180501
  6. ZANTAC [Concomitant]
     Active Substance: RANITIDINE HYDROCHLORIDE
     Indication: PRODUCT USED FOR UNKNOWN INDICATION
     Dosage: UNK
     Route: 065
  7. ADVAIR HFA [Concomitant]
     Active Substance: FLUTICASONE PROPIONATE\SALMETEROL XINAFOATE
     Indication: PRODUCT USED FOR UNKNOWN INDICATION
     Dosage: USING PUMP MORE FREQUENTLY
     Route: 065
  8. XOLAIR [Suspect]
     Active Substance: OMALIZUMAB
     Indication: CHRONIC SPONTANEOUS URTICARIA
     Dosage: 300 MG, EVERY 4 WEEKS
     Route: 058
     Dates: start: 20160510
  9. XOLAIR [Suspect]
     Active Substance: OMALIZUMAB
     Dosage: UNK
     Route: 058
     Dates: start: 20161027
  10. XOLAIR [Suspect]
     Active Substance: OMALIZUMAB
     Dosage: UNK
     Route: 058
     Dates: start: 20170425
  11. XOLAIR [Suspect]
     Active Substance: OMALIZUMAB
     Dosage: UNK
     Route: 058
     Dates: start: 20170615
  12. XOLAIR [Suspect]
     Active Substance: OMALIZUMAB
     Indication: CHRONIC SPONTANEOUS URTICARIA
     Dosage: 300 MG, EVERY 4 WEEKS
     Route: 058
     Dates: start: 20180306
  13. SINGULAIR [Concomitant]
     Active Substance: MONTELUKAST SODIUM
     Indication: PRODUCT USED FOR UNKNOWN INDICATION
     Dosage: UNK
     Route: 065
  14. BENADRYL [Concomitant]
     Active Substance: DIPHENHYDRAMINE HYDROCHLORIDE
     Dosage: (2 PILLS AT NIGHT)
     Route: 065
  15. XOLAIR [Suspect]
     Active Substance: OMALIZUMAB
     Dosage: UNK
     Route: 058
     Dates: start: 20160901
  16. XOLAIR [Suspect]
     Active Substance: OMALIZUMAB
     Dosage: 300 MG, EVERY 4 WEEKS
     Route: 058
     Dates: start: 20190108
  17. METHOTREXATE. [Suspect]
     Active Substance: METHOTREXATE
     Dosage: 15 MG, QW
     Route: 058
     Dates: start: 2018
  18. METHOTREXATE. [Suspect]
     Active Substance: METHOTREXATE
     Dosage: 25 MG, QW
     Route: 058
     Dates: start: 2018
  19. BENADRYL [Concomitant]
     Active Substance: DIPHENHYDRAMINE HYDROCHLORIDE
     Indication: HERPES ZOSTER
     Dosage: UNK
     Route: 065
  20. REACTINE [Concomitant]
     Indication: HERPES ZOSTER
     Dosage: 20 MG, QD
     Route: 065
  21. CORTISONE [Concomitant]
     Active Substance: CORTISONE
     Indication: HERPES ZOSTER
     Dosage: UNK
     Route: 065
  22. ATARAX [Concomitant]
     Active Substance: HYDROXYZINE HYDROCHLORIDE
     Indication: PRODUCT USED FOR UNKNOWN INDICATION
     Dosage: UNK
     Route: 065
  23. XOLAIR [Suspect]
     Active Substance: OMALIZUMAB
     Dosage: UNK
     Route: 058
     Dates: start: 20160706
  24. XOLAIR [Suspect]
     Active Substance: OMALIZUMAB
     Dosage: 300 MG, EVERY 4 WEEKS
     Route: 058
     Dates: start: 20190820
  25. REACTINE [Concomitant]
     Dosage: 2 DF, QD (1 PILL IN MORNING AND 1 PILL IN NIGHT)
     Route: 065
  26. XOLAIR [Suspect]
     Active Substance: OMALIZUMAB
     Dosage: UNK
     Route: 058
     Dates: start: 20160803
  27. XOLAIR [Suspect]
     Active Substance: OMALIZUMAB
     Dosage: UNK
     Route: 058
     Dates: start: 20170126
  28. XOLAIR [Suspect]
     Active Substance: OMALIZUMAB
     Dosage: UNK
     Route: 058
     Dates: start: 20170323
  29. XOLAIR [Suspect]
     Active Substance: OMALIZUMAB
     Dosage: UNK
     Route: 058
     Dates: start: 20170810
  30. XOLAIR [Suspect]
     Active Substance: OMALIZUMAB
     Dosage: 300 MG, EVERY 4 WEEKS
     Route: 058
     Dates: start: 20190528
  31. METHOTREXATE. [Suspect]
     Active Substance: METHOTREXATE
     Indication: ARTHRITIS
     Dosage: 10 MG, QW
     Route: 058
     Dates: start: 2018
  32. VENTOLIN [Concomitant]
     Active Substance: ALBUTEROL SULFATE
     Indication: PRODUCT USED FOR UNKNOWN INDICATION
     Route: 065
  33. FOLIC ACID. [Concomitant]
     Active Substance: FOLIC ACID
     Indication: ARTHRITIS
     Dosage: UNK
     Route: 048
     Dates: start: 2018

REACTIONS (36)
  - Peripheral swelling [Unknown]
  - Skin exfoliation [Recovering/Resolving]
  - Rash [Unknown]
  - Toxicity to various agents [Unknown]
  - Abdominal pain [Unknown]
  - Malaise [Unknown]
  - Vertigo [Unknown]
  - Fatigue [Unknown]
  - Injection site pruritus [Not Recovered/Not Resolved]
  - Injection site pain [Unknown]
  - Weight decreased [Unknown]
  - Oedema peripheral [Unknown]
  - Heart rate decreased [Unknown]
  - Dizziness [Unknown]
  - Pruritus [Unknown]
  - Nasopharyngitis [Recovered/Resolved]
  - Vitamin D deficiency [Unknown]
  - Abdominal adhesions [Unknown]
  - Haemoglobin decreased [Unknown]
  - Nausea [Unknown]
  - Serum ferritin decreased [Unknown]
  - Sinusitis [Unknown]
  - Urticaria [Recovered/Resolved]
  - Herpes zoster [Unknown]
  - Acne [Recovering/Resolving]
  - Intestinal cyst [Unknown]
  - Labyrinthitis [Unknown]
  - Erythema [Recovering/Resolving]
  - Limb discomfort [Unknown]
  - Blood pressure decreased [Unknown]
  - Balance disorder [Unknown]
  - Ear infection [Unknown]
  - Photosensitivity reaction [Recovering/Resolving]
  - Urticaria [Recovering/Resolving]
  - Ovarian cyst [Unknown]
  - Hernia [Unknown]

NARRATIVE: CASE EVENT DATE: 20160510
